FAERS Safety Report 5063291-2 (Version None)
Quarter: 2006Q3

REPORT INFORMATION
  Report Type: 
  Country: None (occurrence: None)
  Receive Date: 20060724
  Receipt Date: 20060711
  Transmission Date: 20061208
  Serious: Yes (Other)
  Sender: FDA-Public Use
  Company Number: 2006086920

PATIENT
  Age: 64 Year
  Sex: Female
  Weight: 92.5338 kg

DRUGS (3)
  1. NEURONTIN [Suspect]
     Indication: MIGRAINE
     Dosage: 2400 MG (800 MG, 3 IN 1 D),
     Dates: start: 19910101
  2. MIRAPEX [Concomitant]
  3. NORVASC [Concomitant]

REACTIONS (6)
  - AMNESIA [None]
  - BUNION [None]
  - GAIT DISTURBANCE [None]
  - RADICULOPATHY [None]
  - SPONDYLOLISTHESIS [None]
  - WEIGHT INCREASED [None]
